FAERS Safety Report 8352090-1 (Version None)
Quarter: 2012Q2

REPORT INFORMATION
  Report Type: 
  Country: None (occurrence: None)
  Receive Date: 20120511
  Receipt Date: 20120427
  Transmission Date: 20120825
  Serious: Yes (Life-Threatening)
  Sender: FDA-Public Use
  Company Number: IT-TEVA-336729ISR

PATIENT
  Sex: Female

DRUGS (4)
  1. CITALOPRAM HYDROBROMIDE [Concomitant]
     Route: 048
  2. CORDARONE [Concomitant]
     Route: 048
  3. COUMADIN [Suspect]
     Indication: ATRIAL FIBRILLATION
     Route: 048
     Dates: start: 20120310, end: 20120406
  4. METFORMIN HCL [Suspect]
     Indication: DIABETES MELLITUS
     Dosage: 500 MILLIGRAM;
     Route: 048
     Dates: start: 20120310, end: 20120406

REACTIONS (3)
  - HYPOCOAGULABLE STATE [None]
  - LACTIC ACIDOSIS [None]
  - RENAL FAILURE ACUTE [None]
